FAERS Safety Report 21498682 (Version 1)
Quarter: 2022Q4

REPORT INFORMATION
  Report Type: Spontaneous
  Country: BR (occurrence: BR)
  Receive Date: 20221024
  Receipt Date: 20221024
  Transmission Date: 20230112
  Serious: Yes (Other)
  Sender: FDA-Public Use
  Company Number: BR-NOVARTISPH-NVSC2022BR217592

PATIENT
  Sex: Female
  Weight: 65 kg

DRUGS (3)
  1. CILOXAN [Suspect]
     Active Substance: CIPROFLOXACIN HYDROCHLORIDE
     Indication: Hypoacusis
     Dosage: 5 MG
     Route: 065
  2. CILOXAN [Suspect]
     Active Substance: CIPROFLOXACIN HYDROCHLORIDE
     Dosage: 3 DRP (IN EAR, START FROM 2 YEARS AGO AND STOPPED 1 MONTH AGO)
     Route: 065
  3. DIMENHYDRINATE [Concomitant]
     Active Substance: DIMENHYDRINATE
     Indication: Dizziness
     Dosage: 25 DRP, QW (LIQUID MANY YEARS AGO)
     Route: 065

REACTIONS (3)
  - Vision blurred [Not Recovered/Not Resolved]
  - Product use in unapproved indication [Unknown]
  - Product availability issue [Unknown]
